FAERS Safety Report 7248272-2 (Version None)
Quarter: 2011Q1

REPORT INFORMATION
  Report Type: 
  Country: None (occurrence: None)
  Receive Date: 20110127
  Receipt Date: 20110118
  Transmission Date: 20110831
  Serious: Yes (Other)
  Sender: FDA-Public Use
  Company Number: ES-JNJFOC-20100308419

PATIENT
  Sex: Male
  Weight: 150 kg

DRUGS (4)
  1. INFLIXIMAB [Suspect]
     Indication: PSORIASIS
  2. ISONIAZID [Concomitant]
  3. STELARA [Suspect]
     Indication: PSORIASIS
     Route: 058
  4. STELARA [Suspect]
     Route: 058

REACTIONS (1)
  - TUBERCULOSIS [None]
